FAERS Safety Report 25975535 (Version 2)
Quarter: 2025Q4

REPORT INFORMATION
  Report Type: Report from Study
  Country: US (occurrence: US)
  Receive Date: 20251029
  Receipt Date: 20251124
  Transmission Date: 20260117
  Serious: Yes (Hospitalization)
  Sender: CSL BEHRING
  Company Number: US-BEH-2025210435

PATIENT
  Age: 52 Year
  Sex: Female
  Weight: 95.238 kg

DRUGS (2)
  1. HIZENTRA [Suspect]
     Active Substance: HUMAN IMMUNOGLOBULIN G
     Indication: Hypogammaglobulinaemia
     Dosage: 20 G
     Route: 058
     Dates: start: 202411
  2. HIZENTRA [Suspect]
     Active Substance: HUMAN IMMUNOGLOBULIN G
     Dosage: UNK
     Route: 065

REACTIONS (11)
  - Hospitalisation [Unknown]
  - Hospitalisation [Unknown]
  - Flushing [Unknown]
  - Hyperhidrosis [Unknown]
  - Malaise [Unknown]
  - Lymphadenopathy [Unknown]
  - Blood sodium decreased [Unknown]
  - Haemoglobin increased [Unknown]
  - Haematocrit increased [Unknown]
  - Movement disorder [Unknown]
  - Gait inability [Unknown]
